FAERS Safety Report 20001848 (Version 1)
Quarter: 2021Q4

REPORT INFORMATION
  Report Type: Spontaneous
  Country: US (occurrence: US)
  Receive Date: 20211027
  Receipt Date: 20211027
  Transmission Date: 20220303
  Serious: No
  Sender: FDA-Public Use
  Company Number: 2021A685255

PATIENT
  Sex: Female
  Weight: 90.7 kg

DRUGS (1)
  1. BYDUREON BCISE [Suspect]
     Active Substance: EXENATIDE
     Route: 065

REACTIONS (3)
  - Complication associated with device [Unknown]
  - Wrong technique in device usage process [Unknown]
  - Product use issue [Unknown]
